FAERS Safety Report 20206508 (Version 1)
Quarter: 2021Q4

REPORT INFORMATION
  Report Type: Spontaneous
  Country: IT (occurrence: IT)
  Receive Date: 20211220
  Receipt Date: 20211220
  Transmission Date: 20220303
  Serious: Yes (Hospitalization, Other)
  Sender: FDA-Public Use
  Company Number: IT-MYLANLABS-2021M1094028

PATIENT
  Age: 57 Year
  Sex: Female

DRUGS (3)
  1. PREDNISONE [Suspect]
     Active Substance: PREDNISONE
     Indication: Autoimmune disorder
     Dosage: 50 MILLIGRAM, QD
     Route: 048
     Dates: start: 201903
  2. PREDNISONE [Suspect]
     Active Substance: PREDNISONE
     Dosage: 25 MILLIGRAM, QD
     Route: 048
     Dates: start: 201908
  3. AMPHOTERICIN B [Concomitant]
     Active Substance: AMPHOTERICIN B
     Indication: Bronchopulmonary aspergillosis
     Dosage: 3 MILLIGRAM/KILOGRAM, QD (LIPOSOMAL)
     Route: 042
     Dates: start: 2019

REACTIONS (4)
  - Bronchopulmonary aspergillosis [Recovered/Resolved]
  - Neuropathy peripheral [Unknown]
  - Gait disturbance [Recovered/Resolved]
  - Steroid dependence [Recovered/Resolved]

NARRATIVE: CASE EVENT DATE: 20190101
